FAERS Safety Report 17238374 (Version 2)
Quarter: 2020Q1

REPORT INFORMATION
  Report Type: Other
  Country: CA (occurrence: CA)
  Receive Date: 20200106
  Receipt Date: 20200312
  Transmission Date: 20200409
  Serious: Yes (Hospitalization)
  Sender: FDA-Public Use
  Company Number: CA-VALIDUS PHARMACEUTICALS LLC-CA-2019VAL000923

PATIENT

DRUGS (4)
  1. TOBRAMYCIN. [Suspect]
     Active Substance: TOBRAMYCIN
     Indication: MENINGITIS
     Dosage: 9 MG, BID
     Route: 048
     Dates: start: 2017, end: 2017
  2. CEFOTAXIME SODIUM [Suspect]
     Active Substance: CEFOTAXIME SODIUM
     Indication: MENINGITIS
     Dosage: 266 MG, Q6H
     Route: 042
     Dates: start: 2017, end: 2017
  3. AMPICILLIN [Suspect]
     Active Substance: AMPICILLIN
     Indication: MENINGITIS
     Dosage: 265 MG, Q6H
     Route: 042
     Dates: start: 2017, end: 2017
  4. ACYCLOVIR                          /00587301/ [Concomitant]
     Active Substance: ACYCLOVIR
     Indication: PRODUCT USED FOR UNKNOWN INDICATION
     Dosage: UNK
     Dates: start: 2017, end: 2017

REACTIONS (5)
  - Pain [Unknown]
  - Anal candidiasis [Unknown]
  - Oral candidiasis [Unknown]
  - Oropharyngeal discolouration [Unknown]
  - Erythema annulare [Unknown]

NARRATIVE: CASE EVENT DATE: 2017
